FAERS Safety Report 5140845-6 (Version None)
Quarter: 2006Q4

REPORT INFORMATION
  Report Type: 
  Country: None (occurrence: None)
  Receive Date: 20061026
  Receipt Date: 20061016
  Transmission Date: 20070319
  Serious: Yes (Death, Hospitalization)
  Sender: FDA-Public Use
  Company Number: 2006127112

PATIENT
  Age: 83 Year
  Sex: Male

DRUGS (2)
  1. CABERGOLINE [Suspect]
     Dosage: ORAL
     Route: 048
  2. EXELON [Suspect]

REACTIONS (3)
  - AGGRESSION [None]
  - LIBIDO INCREASED [None]
  - PARKINSONISM [None]
